FAERS Safety Report 10502438 (Version 3)
Quarter: 2014Q4

REPORT INFORMATION
  Report Type: Report from Study
  Country: DE (occurrence: DE)
  Receive Date: 20141007
  Receipt Date: 20141021
  Transmission Date: 20150528
  Serious: Yes (Hospitalization)
  Sender: FDA-Public Use
  Company Number: PHHO2014DE013142

PATIENT
  Age: 63 Year
  Sex: Male
  Weight: 108 kg

DRUGS (13)
  1. CERTICAN [Suspect]
     Active Substance: EVEROLIMUS
     Dosage: 2 MG, BID
     Route: 048
     Dates: start: 20140710
  2. TACROLIMUS. [Suspect]
     Active Substance: TACROLIMUS
     Indication: LIVER TRANSPLANT
     Dosage: 4MG/5 MG, BID
     Route: 048
     Dates: start: 20130715
  3. LANTUS [Concomitant]
     Active Substance: INSULIN GLARGINE
  4. CERTICAN [Suspect]
     Active Substance: EVEROLIMUS
     Indication: LIVER TRANSPLANT
     Dosage: UNK
     Dates: start: 20130715, end: 20140524
  5. DOCITON [Concomitant]
     Dosage: 10 MG, BID
  6. RAMIPRIL. [Concomitant]
     Active Substance: RAMIPRIL
     Dosage: 5 MG, BID
  7. DEKRISTOL [Concomitant]
     Active Substance: CHOLECALCIFEROL
     Dosage: 20.000 ALLE 2 WO
  8. METOPROLOL [Concomitant]
     Active Substance: METOPROLOL
     Dosage: 150 MG, UNK
  9. TOREM [Concomitant]
     Active Substance: TORSEMIDE
     Dosage: 10 MG, (PAUSE)
  10. NOVAMINSULFON [Concomitant]
     Active Substance: METAMIZOLE
     Dosage: 1-1-1-1
  11. MOXONIDIN [Concomitant]
     Active Substance: MOXONIDINE
     Dosage: 0.3 MG, BID
  12. AZOPT [Concomitant]
     Active Substance: BRINZOLAMIDE
  13. ACTRAPID [Concomitant]
     Active Substance: INSULIN HUMAN

REACTIONS (1)
  - Epilepsy [Recovered/Resolved]

NARRATIVE: CASE EVENT DATE: 20140710
